FAERS Safety Report 21885192 (Version 2)
Quarter: 2023Q1

REPORT INFORMATION
  Report Type: Spontaneous
  Country: DE (occurrence: DE)
  Receive Date: 20230119
  Receipt Date: 20230210
  Transmission Date: 20230417
  Serious: Yes (Other)
  Sender: FDA-Public Use
  Company Number: DE-TEVA-2023-DE-2846823

PATIENT
  Age: 66 Year
  Sex: Male

DRUGS (8)
  1. MYCOPHENOLATE MOFETIL [Suspect]
     Active Substance: MYCOPHENOLATE MOFETIL
     Indication: Sarcoidosis
     Route: 065
     Dates: start: 202101, end: 20210709
  2. PREDNISOLONE [Concomitant]
     Active Substance: PREDNISOLONE
     Indication: Sarcoidosis
     Dosage: 0.5MG/KG
     Route: 065
  3. PREDNISOLONE [Concomitant]
     Active Substance: PREDNISOLONE
     Dosage: 15MG
     Route: 065
  4. AZATHIOPRINE [Concomitant]
     Active Substance: AZATHIOPRINE
     Indication: Sarcoidosis
     Route: 065
  5. MYCOPHENOLIC ACID [Concomitant]
     Active Substance: MYCOPHENOLIC ACID
     Indication: Sarcoidosis
     Dosage: 720 MILLIGRAM DAILY; 360 MG, TWICE DAILY
     Route: 065
  6. BNT162B2 VACCINE [Concomitant]
     Indication: COVID-19 immunisation
     Dosage: 1ST DOSE
     Route: 065
     Dates: start: 20210326
  7. BNT162B2 VACCINE [Concomitant]
     Dosage: 2ND DOSE
     Route: 065
     Dates: start: 20210507
  8. BNT162B2 VACCINE [Concomitant]
     Dosage: 3RD DOSE
     Route: 065
     Dates: start: 20210724

REACTIONS (1)
  - Seroconversion test negative [Recovered/Resolved]

NARRATIVE: CASE EVENT DATE: 20210702
